FAERS Safety Report 25202874 (Version 2)
Quarter: 2025Q2

REPORT INFORMATION
  Report Type: Spontaneous
  Country: PL (occurrence: PL)
  Receive Date: 20250416
  Receipt Date: 20250425
  Transmission Date: 20250717
  Serious: Yes (Other)
  Sender: TEVA
  Company Number: PL-TEVA-VS-3320294

PATIENT
  Age: 39 Year
  Sex: Female

DRUGS (4)
  1. LAMOTRIGINE [Suspect]
     Active Substance: LAMOTRIGINE
     Indication: Visual snow syndrome
     Route: 065
  2. FLUNARIZINE [Suspect]
     Active Substance: FLUNARIZINE
     Indication: Visual snow syndrome
     Route: 065
  3. ACETAZOLAMIDE [Suspect]
     Active Substance: ACETAZOLAMIDE
     Indication: Visual snow syndrome
     Route: 065
  4. TOPIRAMATE [Suspect]
     Active Substance: TOPIRAMATE
     Indication: Visual snow syndrome
     Route: 065

REACTIONS (6)
  - Drug ineffective [Unknown]
  - Skin disorder [Unknown]
  - Dizziness [Unknown]
  - Depressed mood [Unknown]
  - Dizziness [Unknown]
  - Paraesthesia [Unknown]
